FAERS Safety Report 9506489 (Version 1)
Quarter: 2013Q3

REPORT INFORMATION
  Report Type: Spontaneous
  Country: US (occurrence: None)
  Receive Date: 20130905
  Receipt Date: 20130905
  Transmission Date: 20140515
  Serious: Yes (Life-Threatening, Hospitalization, Disabling)
  Sender: FDA-Public Use
  Company Number: None

PATIENT
  Age: 81 Year
  Sex: Male
  Weight: 68.95 kg

DRUGS (5)
  1. IPILIMUMAB [Suspect]
     Indication: MELANOMA RECURRENT
     Dosage: 680MG  INTRAVENOUS
     Dates: start: 20130220, end: 20130424
  2. PRILOSEC [Concomitant]
  3. REGLAN [Concomitant]
  4. LOTEMAX [Concomitant]
  5. REFRESH [Concomitant]

REACTIONS (2)
  - Aphasia [None]
  - Dysphagia [None]
